FAERS Safety Report 6326132-9 (Version None)
Quarter: 2009Q3

REPORT INFORMATION
  Report Type: 
  Country: None (occurrence: None)
  Receive Date: 20090824
  Receipt Date: 20090814
  Transmission Date: 20100115
  Serious: Yes (Other)
  Sender: FDA-Public Use
  Company Number: PHEH2009US09425

PATIENT
  Sex: Female

DRUGS (4)
  1. EXJADE [Suspect]
     Dosage: 1500 MG DAILY
     Route: 048
  2. COUMADIN [Suspect]
  3. ASPIRIN [Concomitant]
  4. OMEPRAZOLE [Concomitant]

REACTIONS (1)
  - THROMBOSIS [None]
